FAERS Safety Report 26059343 (Version 1)
Quarter: 2025Q4

REPORT INFORMATION
  Report Type: Spontaneous
  Country: EU (occurrence: EU)
  Receive Date: 20251118
  Receipt Date: 20251118
  Transmission Date: 20260117
  Serious: Yes (Hospitalization, Other)
  Sender: BRISTOL-MYERS SQUIBB COMPANY
  Company Number: EU-Gedeon Richter Plc.-2023_GR_007696

PATIENT
  Age: 52 Year
  Sex: Male

DRUGS (4)
  1. LENALIDOMIDE [Suspect]
     Active Substance: LENALIDOMIDE
     Indication: Follicular lymphoma
     Dosage: 20 MG ORALLY ONCE A DAY ON DAYS 1-21 OF THE 28-DAY CYCLE
     Route: 048
  2. LENALIDOMIDE [Suspect]
     Active Substance: LENALIDOMIDE
     Indication: Lymphadenopathy
  3. RITUXIMAB [Suspect]
     Active Substance: RITUXIMAB
     Indication: Follicular lymphoma
     Dosage: 375 MG/M2 INTRAVENOUSLY EVERY WEEK IN THE 1ST CYCLE (1ST, 8TH, 15TH AND 22ND DAY) AND DAY 1 OF EACH 28-DAY CYCLE
     Route: 042
  4. RITUXIMAB [Suspect]
     Active Substance: RITUXIMAB
     Indication: Lymphadenopathy

REACTIONS (4)
  - Thrombocytopenia [Unknown]
  - Myelodysplastic syndrome [Unknown]
  - Febrile neutropenia [Unknown]
  - Herpes zoster [Unknown]
